FAERS Safety Report 11687325 (Version 1)
Quarter: 2015Q4

REPORT INFORMATION
  Report Type: Report from Study
  Country: IN (occurrence: IN)
  Receive Date: 20151030
  Receipt Date: 20151030
  Transmission Date: 20160304
  Serious: Yes (Death)
  Sender: FDA-Public Use
  Company Number: IN-BAXTER-2015BAX059376

PATIENT

DRUGS (4)
  1. POTASSIUM [Suspect]
     Active Substance: POTASSIUM
     Indication: EVIDENCE BASED TREATMENT
  2. DEXTROSE AND SODIUM CHLORIDE [Suspect]
     Active Substance: DEXTROSE MONOHYDRATE\SODIUM CHLORIDE
     Indication: FLUID REPLACEMENT
     Route: 042
  3. POTASSIUM [Suspect]
     Active Substance: POTASSIUM
     Indication: FLUID REPLACEMENT
     Dosage: 20MEQ/L
     Route: 042
  4. DEXTROSE AND SODIUM CHLORIDE [Suspect]
     Active Substance: DEXTROSE MONOHYDRATE\SODIUM CHLORIDE
     Indication: EVIDENCE BASED TREATMENT

REACTIONS (1)
  - Death [Fatal]
